FAERS Safety Report 11443372 (Version 4)
Quarter: 2015Q4

REPORT INFORMATION
  Report Type: Report from Study
  Country: US (occurrence: US)
  Receive Date: 20150901
  Receipt Date: 20151020
  Transmission Date: 20160304
  Serious: Yes (Other)
  Sender: FDA-Public Use
  Company Number: US-TAKEDA-2015TUS011531

PATIENT
  Age: 20 Year
  Sex: Male
  Weight: 64 kg

DRUGS (3)
  1. IRON                               /00023549/ [Concomitant]
     Indication: ANAEMIA
     Dosage: UNK, 1/WEEK
     Route: 050
  2. VEDOLIZUMAB [Suspect]
     Active Substance: VEDOLIZUMAB
     Indication: CROHN^S DISEASE
     Dosage: 300 MG, Q8WEEKS
     Route: 042
     Dates: start: 20140715, end: 20150615
  3. VEDOLIZUMAB [Suspect]
     Active Substance: VEDOLIZUMAB
     Dosage: UNK
     Route: 042
     Dates: end: 201506

REACTIONS (3)
  - Drug ineffective [Recovered/Resolved with Sequelae]
  - Large intestinal stenosis [Recovering/Resolving]
  - Liver disorder [Recovering/Resolving]

NARRATIVE: CASE EVENT DATE: 20140715
